FAERS Safety Report 24048402 (Version 1)
Quarter: 2024Q3

REPORT INFORMATION
  Report Type: Spontaneous
  Country: GB (occurrence: GB)
  Receive Date: 20240704
  Receipt Date: 20240704
  Transmission Date: 20241016
  Serious: Yes (Hospitalization, Other)
  Sender: ALKEM
  Company Number: GB-ALKEM LABORATORIES LIMITED-GB-ALKEM-2024-06105

PATIENT
  Age: 55 Year
  Sex: Male

DRUGS (29)
  1. CLOZAPINE [Suspect]
     Active Substance: CLOZAPINE
     Indication: Schizophrenia
     Dosage: UNK (STOPPED AFTER A MONTH)
     Route: 065
  2. CLOZAPINE [Suspect]
     Active Substance: CLOZAPINE
     Dosage: UNK (SECOND TRIAL OF CLOZAPINE IN 2016) (CLOZAPINE WAS PAUSED)
     Route: 065
  3. CLOZAPINE [Suspect]
     Active Substance: CLOZAPINE
     Dosage: UNK (CLOZAPINE WAS STOPPED FOR A THIRD TIME)
     Route: 065
  4. CLOZAPINE [Suspect]
     Active Substance: CLOZAPINE
     Dosage: 350 MILLIGRAM, QD (GRADUALLY INCREASED)
     Route: 065
  5. CLOZAPINE [Suspect]
     Active Substance: CLOZAPINE
     Dosage: 275 MILLIGRAM, OD (DOSE WAS GRADUALLY REDUCED)
     Route: 065
  6. CLOZAPINE [Suspect]
     Active Substance: CLOZAPINE
     Dosage: 300 MILLIGRAM, QD
     Route: 065
  7. CLOZAPINE [Suspect]
     Active Substance: CLOZAPINE
     Dosage: 200 MILLIGRAM, QD
     Route: 065
  8. LAMOTRIGINE [Suspect]
     Active Substance: LAMOTRIGINE
     Indication: Schizophrenia
     Dosage: 400 MILLIGRAM, QD (EVERY MORNING)
     Route: 065
  9. LAMOTRIGINE [Suspect]
     Active Substance: LAMOTRIGINE
     Indication: Seizure prophylaxis
     Dosage: 300 MILLIGRAM (DOSE DECREASED)
     Route: 065
  10. LAMOTRIGINE [Suspect]
     Active Substance: LAMOTRIGINE
     Dosage: UNK
     Route: 065
  11. LAMOTRIGINE [Suspect]
     Active Substance: LAMOTRIGINE
     Dosage: 50 MILLIGRAM (GRADUALLY DOSE REDUCED)
     Route: 065
  12. LAMOTRIGINE [Suspect]
     Active Substance: LAMOTRIGINE
     Dosage: 200 MILLIGRAM, QID (DOSE INCREASED)
     Route: 065
  13. LAMOTRIGINE [Suspect]
     Active Substance: LAMOTRIGINE
     Dosage: 300 MILLIGRAM, QD (GRADUALLY INCREASED)
     Route: 065
  14. LURASIDONE [Suspect]
     Active Substance: LURASIDONE
     Indication: Schizophrenia
     Dosage: 111 MILLIGRAM, HS (DOWN TITRATED AND DISCONTINUED OVER A PERIOD OF 2 WEEKS)
     Route: 065
  15. OLANZAPINE [Suspect]
     Active Substance: OLANZAPINE
     Indication: Schizophrenia
     Dosage: UNK
     Route: 065
  16. FLUPENTIXOL [Suspect]
     Active Substance: FLUPENTIXOL
     Indication: Schizophrenia
     Dosage: UNK
     Route: 065
  17. DIAZEPAM [Concomitant]
     Active Substance: DIAZEPAM
     Indication: Seizure prophylaxis
     Dosage: 5 MILLIGRAM, BID
     Route: 065
  18. DIAZEPAM [Concomitant]
     Active Substance: DIAZEPAM
     Dosage: UNK (REDUCE PATIENT^S DIAZEPAM DOSE BY 1 MILLIGRAM (MG))
     Route: 065
  19. DIAZEPAM [Concomitant]
     Active Substance: DIAZEPAM
     Dosage: UNK (WAS INCREASED TO THE PREVIOUS DOSE)
     Route: 065
  20. DIAZEPAM [Concomitant]
     Active Substance: DIAZEPAM
     Dosage: UNK (2 MILLIGRAM/2 MG/4 MG)
     Route: 065
  21. MIRTAZAPINE [Concomitant]
     Active Substance: MIRTAZAPINE
     Indication: Schizophrenia
     Dosage: 45 MILLIGRAM, HS
     Route: 065
  22. LORAZEPAM [Concomitant]
     Active Substance: LORAZEPAM
     Indication: Seizure prophylaxis
     Dosage: 1 MILLIGRAM, QID
     Route: 065
  23. LORAZEPAM [Concomitant]
     Active Substance: LORAZEPAM
     Dosage: 2.5 MILLIGRAM, QD
     Route: 065
  24. LORAZEPAM [Concomitant]
     Active Substance: LORAZEPAM
     Dosage: 1 MILLIGRAM, QID
     Route: 065
  25. PIMOZIDE [Concomitant]
     Active Substance: PIMOZIDE
     Indication: Schizophrenia
     Dosage: UNK
     Route: 065
  26. PREGABALIN [Concomitant]
     Active Substance: PREGABALIN
     Indication: Anxiety
     Dosage: 100 MILLIGRAM, TID
     Route: 065
  27. PREGABALIN [Concomitant]
     Active Substance: PREGABALIN
     Dosage: UNK (100 MILLIGRAM/ 150 MG/150 MG)
     Route: 065
  28. SERTRALINE [Concomitant]
     Active Substance: SERTRALINE HYDROCHLORIDE
     Indication: Schizophrenia
     Dosage: 200 MILLIGRAM, QD (EVERY MORNING)
     Route: 065
  29. VORTIOXETINE [Concomitant]
     Active Substance: VORTIOXETINE HYDROBROMIDE
     Indication: Schizophrenia
     Dosage: 20 MILLIGRAM, OD (EVERY MORNING)
     Route: 065

REACTIONS (12)
  - Pericardial effusion [Recovering/Resolving]
  - Troponin increased [Unknown]
  - Drug level increased [Unknown]
  - Blood creatine phosphokinase increased [Unknown]
  - Obsessive-compulsive disorder [Unknown]
  - Generalised tonic-clonic seizure [Recovering/Resolving]
  - Tachycardia [Recovered/Resolved]
  - Constipation [Unknown]
  - Salivary hypersecretion [Unknown]
  - Sedation [Unknown]
  - Treatment failure [Unknown]
  - Drug ineffective [Unknown]

NARRATIVE: CASE EVENT DATE: 20210201
